FAERS Safety Report 25450170 (Version 4)
Quarter: 2025Q3

REPORT INFORMATION
  Report Type: Spontaneous
  Country: JP (occurrence: JP)
  Receive Date: 20250618
  Receipt Date: 20250725
  Transmission Date: 20251020
  Serious: Yes (Other)
  Sender: AMGEN
  Company Number: JP-AMGEN-JPNSP2025109158

PATIENT
  Age: 9 Decade
  Sex: Female

DRUGS (3)
  1. TEPEZZA [Suspect]
     Active Substance: TEPROTUMUMAB-TRBW
     Indication: Endocrine ophthalmopathy
     Route: 040
     Dates: start: 20250123
  2. TEPEZZA [Suspect]
     Active Substance: TEPROTUMUMAB-TRBW
     Route: 040
     Dates: start: 2025, end: 20250428
  3. BETAMETHASONE [Concomitant]
     Active Substance: BETAMETHASONE
     Route: 065

REACTIONS (3)
  - Uveitis [Recovered/Resolved]
  - Hyperglycaemia [Recovering/Resolving]
  - Deafness [Unknown]

NARRATIVE: CASE EVENT DATE: 20250228
